FAERS Safety Report 7927039-3 (Version None)
Quarter: 2011Q4

REPORT INFORMATION
  Report Type: 
  Country: None (occurrence: None)
  Receive Date: 20111118
  Receipt Date: 20111108
  Transmission Date: 20120403
  Serious: Yes (Hospitalization)
  Sender: FDA-Public Use
  Company Number: FR-BRISTOL-MYERS SQUIBB COMPANY-16233538

PATIENT
  Age: 79 Year
  Sex: Female

DRUGS (2)
  1. LYSODREN [Suspect]
     Indication: ADRENOCORTICAL CARCINOMA
     Dosage: INITIALLY START WITH 0.5G 3/DAY ON 13AUG2011.
     Route: 048
     Dates: start: 20110813, end: 20110101
  2. HYDROCORTISONE [Concomitant]

REACTIONS (3)
  - HYPERLIPIDAEMIA [None]
  - GAMMA-GLUTAMYLTRANSFERASE INCREASED [None]
  - NEUTROPENIA [None]
